FAERS Safety Report 7330926-0 (Version None)
Quarter: 2011Q1

REPORT INFORMATION
  Report Type: 
  Country: None (occurrence: None)
  Receive Date: 20110304
  Receipt Date: 20110228
  Transmission Date: 20110831
  Serious: Yes (Hospitalization, Other)
  Sender: FDA-Public Use
  Company Number: US-RB-016609-10

PATIENT
  Age: 33 Year
  Sex: Male

DRUGS (1)
  1. SUBOXONE [Suspect]
     Indication: PRODUCT USED FOR UNKNOWN INDICATION
     Dosage: DOSING INFORMATION UNKNOWN
     Route: 065

REACTIONS (20)
  - SUBSTANCE ABUSE [None]
  - HYPERHIDROSIS [None]
  - OEDEMA PERIPHERAL [None]
  - FREQUENT BOWEL MOVEMENTS [None]
  - MALAISE [None]
  - OVERDOSE [None]
  - RHINORRHOEA [None]
  - TESTIS CANCER [None]
  - VOMITING [None]
  - PAIN [None]
  - HERNIA [None]
  - HUNGER [None]
  - SUICIDAL IDEATION [None]
  - HAEMATURIA [None]
  - HAEMOPTYSIS [None]
  - SNEEZING [None]
  - INSOMNIA [None]
  - DEPRESSION [None]
  - NAUSEA [None]
  - INFLUENZA [None]
